FAERS Safety Report 26099904 (Version 2)
Quarter: 2025Q4

REPORT INFORMATION
  Report Type: Spontaneous
  Country: JP (occurrence: JP)
  Receive Date: 20251128
  Receipt Date: 20251225
  Transmission Date: 20260118
  Serious: Yes (Death)
  Sender: ASTELLAS
  Company Number: JP-ASTELLAS-2025-AER-061243

PATIENT
  Age: 8 Decade
  Sex: Male

DRUGS (2)
  1. VYLOY [Suspect]
     Active Substance: ZOLBETUXIMAB-CLZB
     Indication: Gastric cancer
     Route: 042
     Dates: start: 20251031
  2. HEPARIN [Suspect]
     Active Substance: HEPARIN SODIUM
     Indication: Product used for unknown indication
     Route: 065

REACTIONS (2)
  - Ammonia increased [Fatal]
  - Product use issue [Unknown]

NARRATIVE: CASE EVENT DATE: 20251031
